FAERS Safety Report 21449653 (Version 32)
Quarter: 2025Q1

REPORT INFORMATION
  Report Type: Report from Study
  Country: US (occurrence: US)
  Receive Date: 20221013
  Receipt Date: 20250331
  Transmission Date: 20250409
  Serious: Yes (Other)
  Sender: TAKEDA
  Company Number: US-TAKEDA-2022TUS035420

PATIENT
  Sex: Female
  Weight: 154 kg

DRUGS (56)
  1. HUMAN IMMUNOGLOBULIN G [Suspect]
     Active Substance: HUMAN IMMUNOGLOBULIN G
     Indication: Immunodeficiency common variable
     Dosage: 40 GRAM, Q4WEEKS
     Dates: start: 20220514
  2. DILAUDID [Suspect]
     Active Substance: HYDROMORPHONE HYDROCHLORIDE
     Indication: Product used for unknown indication
  3. DIPHENHYDRAMINE HYDROCHLORIDE [Concomitant]
     Active Substance: DIPHENHYDRAMINE HYDROCHLORIDE
  4. HEPARIN [Concomitant]
     Active Substance: HEPARIN SODIUM
  5. BUPROPION [Concomitant]
     Active Substance: BUPROPION
  6. VYVANSE [Concomitant]
     Active Substance: LISDEXAMFETAMINE DIMESYLATE
  7. SCOPOLAMINE [Concomitant]
     Active Substance: SCOPOLAMINE
  8. Doxylamine;Phenylephrine [Concomitant]
  9. KETOCONAZOLE [Concomitant]
     Active Substance: KETOCONAZOLE
  10. VITAMIN D3 [Concomitant]
     Active Substance: CHOLECALCIFEROL
  11. EPINEPHRINE [Concomitant]
     Active Substance: EPINEPHRINE
  12. SODIUM CHLORIDE [Concomitant]
     Active Substance: SODIUM CHLORIDE
  13. CLOBETASOL PROPIONATE [Concomitant]
     Active Substance: CLOBETASOL PROPIONATE
  14. PROPRANOLOL HYDROCHLORIDE [Concomitant]
     Active Substance: PROPRANOLOL HYDROCHLORIDE
  15. CLINDAMYCIN HYDROCHLORIDE [Concomitant]
     Active Substance: CLINDAMYCIN HYDROCHLORIDE
  16. PREGABALIN [Concomitant]
     Active Substance: PREGABALIN
  17. DOCUSATE SODIUM [Concomitant]
     Active Substance: DOCUSATE SODIUM
  18. ACETAMINOPHEN [Concomitant]
     Active Substance: ACETAMINOPHEN
  19. NARCAN [Concomitant]
     Active Substance: NALOXONE HYDROCHLORIDE
  20. TACROLIMUS [Concomitant]
     Active Substance: TACROLIMUS
  21. Vegele Laxative [Concomitant]
  22. MUPIROCIN [Concomitant]
     Active Substance: MUPIROCIN
  23. ONDANSETRON [Concomitant]
     Active Substance: ONDANSETRON
  24. BIOTIN [Concomitant]
     Active Substance: BIOTIN
  25. SODIUM CHLORIDE [Concomitant]
     Active Substance: SODIUM CHLORIDE
  26. MYCOPHENOLATE MOFETIL [Concomitant]
     Active Substance: MYCOPHENOLATE MOFETIL
  27. BUPRENORPHINE AND NALOXONE [Concomitant]
     Active Substance: BUPRENORPHINE HYDROCHLORIDE\NALOXONE HYDROCHLORIDE
  28. CLINPRO 5000 [Concomitant]
     Active Substance: SODIUM FLUORIDE
  29. PERIDEX [Concomitant]
     Active Substance: CHLORHEXIDINE GLUCONATE
  30. CLINDAMYCIN PHOSPHATE [Concomitant]
     Active Substance: CLINDAMYCIN PHOSPHATE
  31. HYDROCORTISONE [Concomitant]
     Active Substance: HYDROCORTISONE
  32. HYDROXYZINE HYDROCHLORIDE [Concomitant]
     Active Substance: HYDROXYZINE HYDROCHLORIDE
  33. LIDOCAINE [Concomitant]
     Active Substance: LIDOCAINE
  34. CELECOXIB [Concomitant]
     Active Substance: CELECOXIB
  35. OMEPRAZOLE [Concomitant]
     Active Substance: OMEPRAZOLE
  36. FLUOCINONIDE [Concomitant]
     Active Substance: FLUOCINONIDE
  37. DIPHENHYDRAMINE [Concomitant]
     Active Substance: DIPHENHYDRAMINE
  38. MELATONIN [Concomitant]
     Active Substance: MELATONIN
  39. ADDERALL [Concomitant]
     Active Substance: AMPHETAMINE ASPARTATE\AMPHETAMINE SULFATE\DEXTROAMPHETAMINE SACCHARATE\DEXTROAMPHETAMINE SULFATE
  40. SEROQUEL [Concomitant]
     Active Substance: QUETIAPINE FUMARATE
  41. CLONIDINE HYDROCHLORIDE [Concomitant]
     Active Substance: CLONIDINE HYDROCHLORIDE
  42. SEROQUEL XR [Concomitant]
     Active Substance: QUETIAPINE FUMARATE
  43. OXYBUTYNIN CHLORIDE [Concomitant]
     Active Substance: OXYBUTYNIN CHLORIDE
  44. GABAPENTIN [Concomitant]
     Active Substance: GABAPENTIN
  45. SERTRALINE HYDROCHLORIDE [Concomitant]
     Active Substance: SERTRALINE HYDROCHLORIDE
  46. HYDROMORPHONE HCL [Concomitant]
     Active Substance: HYDROMORPHONE HYDROCHLORIDE
  47. CRANBERRY CONCENTRATE [Concomitant]
     Active Substance: CRANBERRY CONCENTRATE
  48. TRAZODONE [Concomitant]
     Active Substance: TRAZODONE HYDROCHLORIDE
  49. QUETIAPINE FUMARATE [Concomitant]
     Active Substance: QUETIAPINE FUMARATE
  50. PROPRANOLOL [Concomitant]
     Active Substance: PROPRANOLOL HYDROCHLORIDE
  51. HYDROXYZINE [Concomitant]
     Active Substance: HYDROXYZINE HYDROCHLORIDE
  52. DOXYCYCLINE HYCLATE [Concomitant]
     Active Substance: DOXYCYCLINE HYCLATE
  53. CLINDAMYCIN [Concomitant]
     Active Substance: CLINDAMYCIN
  54. CYMBALTA [Concomitant]
     Active Substance: DULOXETINE HYDROCHLORIDE
  55. TACROLIMUS [Concomitant]
     Active Substance: TACROLIMUS
  56. ADVAIR HFA [Concomitant]
     Active Substance: FLUTICASONE PROPIONATE\SALMETEROL XINAFOATE

REACTIONS (57)
  - Pneumonia [Unknown]
  - Infection [Not Recovered/Not Resolved]
  - Insurance issue [Unknown]
  - Weight increased [Unknown]
  - Micturition frequency decreased [Unknown]
  - Fall [Unknown]
  - Product use issue [Unknown]
  - Incorrect drug administration rate [Unknown]
  - Skin laceration [Unknown]
  - Food poisoning [Not Recovered/Not Resolved]
  - Wound [Unknown]
  - Cognitive disorder [Unknown]
  - Dehydration [Recovering/Resolving]
  - Urinary tract infection [Unknown]
  - Skin infection [Unknown]
  - Fungal skin infection [Not Recovered/Not Resolved]
  - Infective glossitis [Not Recovered/Not Resolved]
  - Hidradenitis [Unknown]
  - Tinnitus [Unknown]
  - Withdrawal syndrome [Not Recovered/Not Resolved]
  - Pharyngitis streptococcal [Unknown]
  - Gastroenteritis viral [Unknown]
  - Device dislocation [Unknown]
  - Herpes zoster [Unknown]
  - Peripheral swelling [Unknown]
  - Sleep disorder [Unknown]
  - Inflammation [Unknown]
  - Sunburn [Unknown]
  - Illness [Unknown]
  - Paranasal sinus discomfort [Unknown]
  - Respiratory tract infection [Unknown]
  - Infusion related reaction [Unknown]
  - Hypoaesthesia [Unknown]
  - Influenza [Unknown]
  - Heart rate abnormal [Unknown]
  - Photosensitivity reaction [Unknown]
  - Oxygen saturation decreased [Unknown]
  - Hypertension [Unknown]
  - Back pain [Unknown]
  - Arthralgia [Unknown]
  - Oedema [Unknown]
  - Cough [Unknown]
  - Dyspnoea [Unknown]
  - Fatigue [Unknown]
  - Nausea [Recovered/Resolved]
  - Feeling abnormal [Unknown]
  - Sinusitis [Not Recovered/Not Resolved]
  - Pain [Recovered/Resolved]
  - Vision blurred [Unknown]
  - Muscle twitching [Unknown]
  - Oropharyngeal pain [Unknown]
  - Chest discomfort [Unknown]
  - Chest pain [Unknown]
  - Blood pressure increased [Unknown]
  - Rash [Unknown]
  - Dizziness [Recovered/Resolved]
  - Headache [Not Recovered/Not Resolved]
